FAERS Safety Report 9630160 (Version 23)
Quarter: 2014Q3

REPORT INFORMATION
  Report Type: Report from Study
  Country: CA (occurrence: CA)
  Receive Date: 20131017
  Receipt Date: 20140901
  Transmission Date: 20150326
  Serious: Yes (Other)
  Sender: FDA-Public Use
  Company Number: PHHY2013CA116573

PATIENT
  Age: 53 Year
  Sex: Female

DRUGS (9)
  1. CLOMIPRAMINE [Concomitant]
     Active Substance: CLOMIPRAMINE
     Dosage: 300 MG, QHS
     Route: 048
  2. HALOPERIDOL. [Concomitant]
     Active Substance: HALOPERIDOL
     Dosage: 5 MG, QHS AT AM
     Route: 048
  3. LACTULOSE. [Concomitant]
     Active Substance: LACTULOSE
     Dosage: 30 ML, UNK
  4. VITAMIN D [Concomitant]
     Active Substance: CHOLECALCIFEROL
     Dosage: UNK UKN, UNK
  5. LORAZEPAM. [Concomitant]
     Active Substance: LORAZEPAM
     Dosage: 2 MG, TID
     Route: 048
  6. CLONAZEPAM. [Concomitant]
     Active Substance: CLONAZEPAM
     Dosage: 0.5 MG, QHS
  7. ZUCLOPENTHIXOL DECANOATE [Concomitant]
     Active Substance: ZUCLOPENTHIXOL DECANOATE
     Dosage: 250 MG, BIW
     Route: 030
  8. CLOZARIL [Suspect]
     Active Substance: CLOZAPINE
     Indication: SCHIZOPHRENIA
     Dosage: 450 MG, (100 MG AT AM AND 350 MG AT PM)
     Route: 048
     Dates: start: 20130503, end: 20140805
  9. CHLORPROMAZINE [Concomitant]
     Active Substance: CHLORPROMAZINE
     Dosage: 50 MG, QHS

REACTIONS (15)
  - Neutropenia [Not Recovered/Not Resolved]
  - C-reactive protein increased [Unknown]
  - Lymphocyte count increased [Unknown]
  - Haemoglobin decreased [Unknown]
  - Creatinine renal clearance decreased [Unknown]
  - Myeloid maturation arrest [Unknown]
  - Anaemia [Unknown]
  - Red blood cell sedimentation rate increased [Unknown]
  - Band neutrophil percentage increased [Unknown]
  - Haematocrit decreased [Unknown]
  - Blood folate decreased [Unknown]
  - Antiphospholipid antibodies positive [Unknown]
  - Basophil count increased [Unknown]
  - Alanine aminotransferase increased [Unknown]
  - Leukopenia [Not Recovered/Not Resolved]

NARRATIVE: CASE EVENT DATE: 20130917
